FAERS Safety Report 6008783-4 (Version None)
Quarter: 2008Q4

REPORT INFORMATION
  Report Type: 
  Country: None (occurrence: None)
  Receive Date: 20081217
  Receipt Date: 20080828
  Transmission Date: 20090506
  Serious: No
  Sender: FDA-Public Use
  Company Number: US-AMGEN-KDL298140

PATIENT
  Sex: Female

DRUGS (17)
  1. ARANESP [Suspect]
     Indication: RENAL FAILURE CHRONIC
     Route: 058
     Dates: start: 20080729, end: 20080812
  2. ATENOLOL [Suspect]
  3. HUMULIN 70/30 [Suspect]
  4. HYDRALAZINE HCL [Suspect]
  5. MORPHINE SULFATE [Suspect]
  6. PHOSLO [Concomitant]
  7. LASIX [Concomitant]
  8. REGLAN [Concomitant]
  9. PREVACID [Concomitant]
  10. ASPIRIN [Concomitant]
  11. LEVOTHYROXINE SODIUM [Concomitant]
  12. HYDROXYZINE [Concomitant]
  13. MULTI-VITAMINS [Concomitant]
  14. VITAMIN D [Concomitant]
  15. DULCOLAX [Concomitant]
  16. TRIAMCINOLONE [Concomitant]
  17. IRON [Concomitant]

REACTIONS (3)
  - AMNESIA [None]
  - BLOOD GLUCOSE DECREASED [None]
  - FEELING ABNORMAL [None]
